FAERS Safety Report 21712638 (Version 1)
Quarter: 2022Q4

REPORT INFORMATION
  Report Type: Spontaneous
  Country: JP (occurrence: JP)
  Receive Date: 20221212
  Receipt Date: 20221212
  Transmission Date: 20230113
  Serious: Yes (Other)
  Sender: FDA-Public Use
  Company Number: JP-MYLANLABS-2022M1137289

PATIENT
  Age: 60 Year
  Sex: Female

DRUGS (4)
  1. TERBINAFINE [Suspect]
     Active Substance: TERBINAFINE
     Indication: Body tinea
     Dosage: SHE STARTED ON ORAL AND TOPICAL TERBINAFINE FOR 1 YEAR
     Route: 048
  2. TERBINAFINE [Suspect]
     Active Substance: TERBINAFINE
     Indication: Body tinea
     Dosage: SHE STARTED ON ORAL AND TOPICAL TERBINAFINE FOR 1 YEAR
     Route: 061
  3. FOSRAVUCONAZOLE [Suspect]
     Active Substance: FOSRAVUCONAZOLE
     Indication: Body tinea
     Dosage: TREATMENT RECEIVED FOR 1 YEAR AND 6 MONTHS
     Route: 048
  4. LULICONAZOLE [Suspect]
     Active Substance: LULICONAZOLE
     Indication: Body tinea
     Dosage: TREATMENT RECEIVED FOR 1 YEAR AND 6 MONTHS
     Route: 061

REACTIONS (1)
  - Multiple-drug resistance [Unknown]
